FAERS Safety Report 17281875 (Version 1)
Quarter: 2020Q1

REPORT INFORMATION
  Report Type: Spontaneous
  Country: US (occurrence: US)
  Receive Date: 20191228
  Receipt Date: 20191228
  Transmission Date: 20200409
  Serious: No
  Sender: FDA-Public Use
  Company Number: None

PATIENT
  Age: 64 Year
  Sex: Female

DRUGS (1)
  1. SOFOSBUVIR/VELSPATASVIR 400-100MG [Suspect]
     Active Substance: SOFOSBUVIR\VELPATASVIR
     Dosage: 400MG/100MG BID ORAL?
     Route: 048
     Dates: start: 201912

REACTIONS (1)
  - Musculoskeletal stiffness [None]

NARRATIVE: CASE EVENT DATE: 20191228
